FAERS Safety Report 5856639-X (Version None)
Quarter: 2008Q3

REPORT INFORMATION
  Report Type: 
  Country: None (occurrence: None)
  Receive Date: 20080822
  Receipt Date: 20080822
  Transmission Date: 20090109
  Serious: Yes (Other)
  Sender: FDA-Public Use
  Company Number: None

PATIENT
  Age: 63 Year
  Sex: Male
  Weight: 102.0593 kg

DRUGS (2)
  1. PSEUDOVENT 400 CAPSULES [Suspect]
     Indication: RESPIRATORY DISORDER
     Dates: start: 20080509, end: 20080515
  2. PSEUDOVENT 400 CAPSULES [Suspect]
     Indication: RESPIRATORY DISORDER
     Dates: start: 20080810, end: 20080812

REACTIONS (3)
  - ABDOMINAL PAIN LOWER [None]
  - ANURIA [None]
  - DYSURIA [None]
